FAERS Safety Report 19624950 (Version 7)
Quarter: 2025Q3

REPORT INFORMATION
  Report Type: Report from Study
  Country: CA (occurrence: CA)
  Receive Date: 20210728
  Receipt Date: 20250707
  Transmission Date: 20251020
  Serious: Yes (Other)
  Sender: PFIZER
  Company Number: CA-PFIZER INC-2021894423

PATIENT
  Age: 52 Year
  Sex: Female

DRUGS (20)
  1. METHOTREXATE SODIUM [Suspect]
     Active Substance: METHOTREXATE SODIUM
     Route: 058
  2. METHOTREXATE SODIUM [Suspect]
     Active Substance: METHOTREXATE SODIUM
     Route: 058
  3. METHOTREXATE SODIUM [Suspect]
     Active Substance: METHOTREXATE SODIUM
     Route: 048
  4. COLCHICINE [Suspect]
     Active Substance: COLCHICINE
     Route: 048
  5. DICLOFENAC [Suspect]
     Active Substance: DICLOFENAC
     Route: 048
  6. ERELZI [Suspect]
     Active Substance: ETANERCEPT-SZZS
     Indication: Ankylosing spondylitis
     Dosage: 50 MG, WEEKLY
     Route: 058
  7. LEFLUNOMIDE [Suspect]
     Active Substance: LEFLUNOMIDE
  8. LEFLUNOMIDE [Suspect]
     Active Substance: LEFLUNOMIDE
     Route: 065
  9. ARAVA [Concomitant]
     Active Substance: LEFLUNOMIDE
     Route: 048
  10. DESOXIMETASONE [Concomitant]
     Active Substance: DESOXIMETASONE
     Route: 058
  11. DESOXIMETASONE [Concomitant]
     Active Substance: DESOXIMETASONE
     Route: 058
  12. INDOMETHACIN [Concomitant]
     Active Substance: INDOMETHACIN
  13. INDOMETHACIN [Concomitant]
     Active Substance: INDOMETHACIN
  14. INDOMETHACIN [Concomitant]
     Active Substance: INDOMETHACIN
  15. NAPROXEN [Concomitant]
     Active Substance: NAPROXEN
  16. NAPROXEN [Concomitant]
     Active Substance: NAPROXEN
  17. PREDNISONE [Concomitant]
     Active Substance: PREDNISONE
     Route: 048
  18. PREDNISONE [Concomitant]
     Active Substance: PREDNISONE
     Route: 048
  19. VIOXX [Concomitant]
     Active Substance: ROFECOXIB
  20. GOLD/HYOSCYAMUS NIGER/ONOPORDUM ACANTHIUM FLOWER/PRIMULA VERIS FLOWER [Concomitant]
     Route: 030

REACTIONS (7)
  - Drug ineffective [Unknown]
  - Drug intolerance [Unknown]
  - Episcleritis [Unknown]
  - Uveitis [Unknown]
  - C-reactive protein abnormal [Unknown]
  - Crohn^s disease [Unknown]
  - Product use issue [Unknown]
